FAERS Safety Report 5291943-8 (Version None)
Quarter: 2007Q2

REPORT INFORMATION
  Report Type: 
  Country: None (occurrence: None)
  Receive Date: 20070410
  Receipt Date: 20070404
  Transmission Date: 20071010
  Serious: Yes (Other)
  Sender: FDA-Public Use
  Company Number: JP-AVENTIS-200710492JP

PATIENT
  Age: 83 Year
  Sex: Male

DRUGS (6)
  1. ALLEGRA [Suspect]
  2. RINDERON                           /00008501/ [Concomitant]
  3. FLOMOX [Concomitant]
  4. LOXONIN                            /00890701/ [Concomitant]
  5. BLOPRESS [Concomitant]
  6. GASTER [Concomitant]

REACTIONS (2)
  - BLOOD PRESSURE INCREASED [None]
  - DIZZINESS [None]
